FAERS Safety Report 5798581-9 (Version None)
Quarter: 2008Q3

REPORT INFORMATION
  Report Type: 
  Country: None (occurrence: None)
  Receive Date: 20080702
  Receipt Date: 20080627
  Transmission Date: 20090109
  Serious: Yes (Other)
  Sender: FDA-Public Use
  Company Number: US-KINGPHARMUSA00001-K200800745

PATIENT

DRUGS (5)
  1. ALTACE [Suspect]
     Indication: HYPERTENSION
     Dosage: 2.5 MG, QD
     Route: 048
     Dates: start: 19990101, end: 20080401
  2. HYDROCHLOROTHIAZIDE [Suspect]
     Indication: HYPERTENSION
     Dosage: 12.5 MG, QD
     Route: 048
     Dates: start: 19990101, end: 20080401
  3. LEVOTHYROXINE SODIUM [Concomitant]
     Indication: HYPOTHYROIDISM
     Dosage: 100 MCG, QD, MON - FRI
     Dates: start: 19960101
  4. LEVOTHYROXINE SODIUM [Concomitant]
     Dosage: 150 MCG, QD, SAT - SUN
     Dates: start: 19960101
  5. METFORMIN HCL [Concomitant]
     Indication: INSULIN RESISTANCE
     Dosage: 850 MG, QD
     Dates: start: 20070101

REACTIONS (2)
  - DRUG INEFFECTIVE [None]
  - HYPERTENSIVE CRISIS [None]
